FAERS Safety Report 17136809 (Version 2)
Quarter: 2020Q1

REPORT INFORMATION
  Report Type: Report from Study
  Country: IL (occurrence: IL)
  Receive Date: 20191210
  Receipt Date: 20200328
  Transmission Date: 20200409
  Serious: Yes (Hospitalization, Other)
  Sender: FDA-Public Use
  Company Number: PHHY2018IL010213

PATIENT
  Age: 44 Year
  Sex: Female
  Weight: 105 kg

DRUGS (7)
  1. REVOLADE [Suspect]
     Active Substance: ELTROMBOPAG
     Dosage: 25 MG, UNK (EVERY THREE DAYS)
     Route: 048
  2. REVOLADE [Suspect]
     Active Substance: ELTROMBOPAG
     Dosage: 25 MG, QD
     Route: 048
     Dates: start: 20180522, end: 20180522
  3. REVOLADE [Suspect]
     Active Substance: ELTROMBOPAG
     Dosage: 25 MG, QOD
     Route: 048
  4. REVOLADE [Suspect]
     Active Substance: ELTROMBOPAG
     Dosage: 25 MG, QOD
     Route: 048
     Dates: start: 201906
  5. REVOLADE [Suspect]
     Active Substance: ELTROMBOPAG
     Dosage: 25 MG, EVERY 3 DAYS
     Route: 048
     Dates: start: 201805
  6. REVOLADE [Suspect]
     Active Substance: ELTROMBOPAG
     Indication: IMMUNE THROMBOCYTOPENIC PURPURA
     Dosage: 50 MG, QD
     Route: 048
     Dates: start: 20180514, end: 20180522
  7. REVOLADE [Suspect]
     Active Substance: ELTROMBOPAG
     Dosage: 25 MG, QOD
     Route: 048
     Dates: start: 20191128

REACTIONS (25)
  - Vision blurred [Not Recovered/Not Resolved]
  - Visual impairment [Unknown]
  - Headache [Not Recovered/Not Resolved]
  - Cataract [Not Recovered/Not Resolved]
  - Fractured coccyx [Unknown]
  - Dizziness [Not Recovered/Not Resolved]
  - Skin discolouration [Recovering/Resolving]
  - Inappropriate schedule of product administration [Unknown]
  - Myocardial ischaemia [Unknown]
  - Platelet count abnormal [Not Recovered/Not Resolved]
  - Tongue discomfort [Not Recovered/Not Resolved]
  - Asthenia [Recovered/Resolved]
  - Pain [Recovering/Resolving]
  - Productive cough [Not Recovered/Not Resolved]
  - Asthenia [Not Recovered/Not Resolved]
  - Alopecia [Not Recovered/Not Resolved]
  - Pharyngitis [Unknown]
  - Chest pain [Recovered/Resolved]
  - Tongue ulceration [Not Recovered/Not Resolved]
  - Pulmonary fibrosis [Unknown]
  - Fall [Unknown]
  - Oropharyngeal pain [Recovering/Resolving]
  - Pain in extremity [Recovered/Resolved]
  - Haematoma [Not Recovered/Not Resolved]
  - Concomitant disease aggravated [Not Recovered/Not Resolved]

NARRATIVE: CASE EVENT DATE: 20180515
